FAERS Safety Report 7639119-0 (Version None)
Quarter: 2011Q3

REPORT INFORMATION
  Report Type: 
  Country: None (occurrence: None)
  Receive Date: 20110727
  Receipt Date: 20110715
  Transmission Date: 20111222
  Serious: Yes (Hospitalization)
  Sender: FDA-Public Use
  Company Number: US-ACTELION-A-NJ2011-51719

PATIENT

DRUGS (3)
  1. OXYGEN [Concomitant]
  2. SILDENAFIL CITRATE [Concomitant]
  3. EPOPROSTENOL SODIUM [Suspect]
     Indication: PULMONARY ARTERIAL HYPERTENSION
     Dosage: 24.5 NG/KG, PER MIN
     Route: 041
     Dates: start: 20110705, end: 20110715

REACTIONS (1)
  - CELLULITIS [None]
